FAERS Safety Report 18467623 (Version 1)
Quarter: 2020Q4

REPORT INFORMATION
  Report Type: Report from Study
  Country: US (occurrence: US)
  Receive Date: 20201105
  Receipt Date: 20201105
  Transmission Date: 20210114
  Serious: No
  Sender: FDA-Public Use
  Company Number: US-KYOWAKIRIN-2020BKK017686

PATIENT

DRUGS (14)
  1. ONDANSETRON [Concomitant]
     Active Substance: ONDANSETRON
     Indication: PROCEDURAL VOMITING
  2. APREPITANT. [Concomitant]
     Active Substance: APREPITANT
     Indication: PROCEDURAL VOMITING
  3. GRANISETRON [Suspect]
     Active Substance: GRANISETRON
     Indication: PROCEDURAL VOMITING
  4. ONDANSETRON [Concomitant]
     Active Substance: ONDANSETRON
     Indication: PROCEDURAL NAUSEA
     Dosage: UNK
     Route: 065
  5. METOCLOPRAMIDE. [Concomitant]
     Active Substance: METOCLOPRAMIDE
     Indication: PROCEDURAL NAUSEA
     Dosage: UNK
     Route: 065
  6. GRANISETRON [Suspect]
     Active Substance: GRANISETRON
     Indication: PROCEDURAL NAUSEA
     Dosage: UNK
     Route: 065
  7. APREPITANT. [Concomitant]
     Active Substance: APREPITANT
     Indication: PROCEDURAL NAUSEA
     Dosage: UNK
     Route: 065
  8. DRONABINOL. [Concomitant]
     Active Substance: DRONABINOL
     Indication: PROCEDURAL NAUSEA
     Dosage: UNK
     Route: 065
  9. PROCHLORPERAZINE. [Concomitant]
     Active Substance: PROCHLORPERAZINE
     Indication: PROCEDURAL NAUSEA
     Dosage: UNK
     Route: 065
  10. DRONABINOL. [Concomitant]
     Active Substance: DRONABINOL
     Indication: PROCEDURAL VOMITING
  11. PALONOSETRON. [Concomitant]
     Active Substance: PALONOSETRON HYDROCHLORIDE
     Indication: PROCEDURAL NAUSEA
     Dosage: UNK
     Route: 065
  12. PROCHLORPERAZINE. [Concomitant]
     Active Substance: PROCHLORPERAZINE
     Indication: PROCEDURAL VOMITING
  13. PALONOSETRON. [Concomitant]
     Active Substance: PALONOSETRON HYDROCHLORIDE
     Indication: PROCEDURAL VOMITING
  14. METOCLOPRAMIDE. [Concomitant]
     Active Substance: METOCLOPRAMIDE
     Indication: PROCEDURAL VOMITING

REACTIONS (1)
  - Product use in unapproved indication [Unknown]
